FAERS Safety Report 5443019-4 (Version None)
Quarter: 2007Q3

REPORT INFORMATION
  Report Type: 
  Country: None (occurrence: None)
  Receive Date: 20070905
  Receipt Date: 20070827
  Transmission Date: 20080115
  Serious: Yes (Other)
  Sender: FDA-Public Use
  Company Number: PHBS2007JP14347

PATIENT

DRUGS (1)
  1. SANDIMMUNE [Suspect]
     Indication: BONE MARROW TRANSPLANT
     Route: 042

REACTIONS (3)
  - BLOOD MAGNESIUM DECREASED [None]
  - DELIRIUM [None]
  - NERVOUS SYSTEM DISORDER [None]
